FAERS Safety Report 7032084-9 (Version None)
Quarter: 2010Q4

REPORT INFORMATION
  Report Type: 
  Country: None (occurrence: None)
  Receive Date: 20101007
  Receipt Date: 20100125
  Transmission Date: 20110411
  Serious: No
  Sender: FDA-Public Use
  Company Number: US-KINGPHARMUSA00001-K201000095

PATIENT
  Sex: Male

DRUGS (1)
  1. SONATA [Suspect]
     Indication: SLEEP DISORDER
     Dosage: 10 MG, UNK
     Route: 048
     Dates: start: 20091201

REACTIONS (1)
  - MIDDLE INSOMNIA [None]
